FAERS Safety Report 9162248 (Version 1)
Quarter: 2013Q1

REPORT INFORMATION
  Report Type: Spontaneous
  Country: CH (occurrence: None)
  Receive Date: 20130215
  Receipt Date: 20130215
  Transmission Date: 20140127
  Serious: Yes (Hospitalization)
  Sender: FDA-Public Use
  Company Number: SYM-2013-00428

PATIENT
  Age: 80 Year
  Sex: Male

DRUGS (6)
  1. MESTINON [Suspect]
     Indication: MYASTHENIA GRAVIS
     Route: 048
     Dates: start: 20121208, end: 201212
  2. KCL [Suspect]
     Dates: start: 20121207, end: 201212
  3. PLAVIX (CLOPIDOGREL BISULFATE) (CLOPIDOGREL BISULFATE) [Concomitant]
  4. COAPROVEL (KARVEA HCT) (HYDROCHLOROTHIAZIDE, IRBESARTAN) [Concomitant]
  5. TRANSIPEG (OTHER THEAPEUTIC PRODUCTS) [Concomitant]
  6. MAGNESIOCARD ORGANGE (MAGNESIUM ASPARTATE HYDROCHLORIDE) (MAGNESIUM ASPARTATE HYDROCHLORIDE) [Concomitant]

REACTIONS (3)
  - Rash [None]
  - Hypersensitivity [None]
  - Rash erythematous [None]
